FAERS Safety Report 6080000-9 (Version None)
Quarter: 2009Q1

REPORT INFORMATION
  Report Type: 
  Country: None (occurrence: None)
  Receive Date: 20090217
  Receipt Date: 20090109
  Transmission Date: 20090719
  Serious: No
  Sender: FDA-Public Use
  Company Number: A0762836A

PATIENT
  Age: 37 Year
  Sex: Male

DRUGS (3)
  1. COREG CR [Suspect]
     Indication: HYPERTENSION
     Dosage: 20MG SINGLE DOSE
     Route: 048
     Dates: start: 20080418
  2. CRESTOR [Concomitant]
  3. SKELAXIN [Concomitant]

REACTIONS (5)
  - HYPOTENSION [None]
  - LETHARGY [None]
  - SPEECH DISORDER [None]
  - VISION BLURRED [None]
  - VISUAL IMPAIRMENT [None]
